FAERS Safety Report 15075422 (Version 2)
Quarter: 2023Q4

REPORT INFORMATION
  Report Type: Spontaneous
  Country: US (occurrence: US)
  Receive Date: 20180627
  Receipt Date: 20231128
  Transmission Date: 20240110
  Serious: Yes (Other)
  Sender: FDA-Public Use
  Company Number: US-SAOL THERAPEUTICS-0700667839

PATIENT
  Age: 27 Year
  Sex: Male

DRUGS (8)
  1. LIORESAL [Suspect]
     Active Substance: BACLOFEN
     Dosage: 643.4 MCG / DAY
     Route: 037
  2. LIORESAL [Suspect]
     Active Substance: BACLOFEN
     Dosage: 12.2 ?G, UNK
     Route: 037
  3. BACLOFEN [Suspect]
     Active Substance: BACLOFEN
     Route: 048
  4. GABAPENTIN [Suspect]
     Active Substance: GABAPENTIN
  5. LAMICTAL [Suspect]
     Active Substance: LAMOTRIGINE
  6. LORAZEPAM [Suspect]
     Active Substance: LORAZEPAM
  7. PROPRANOLOL [Suspect]
     Active Substance: PROPRANOLOL HYDROCHLORIDE
  8. RISPERIDONE [Suspect]
     Active Substance: RISPERIDONE

REACTIONS (2)
  - Therapy non-responder [Unknown]
  - Muscle spasticity [Unknown]

NARRATIVE: CASE EVENT DATE: 20140610
